FAERS Safety Report 10023594 (Version 1)
Quarter: 2014Q1

REPORT INFORMATION
  Report Type: Spontaneous
  Country: BR (occurrence: BR)
  Receive Date: 20140320
  Receipt Date: 20140320
  Transmission Date: 20141002
  Serious: Yes (Other)
  Sender: FDA-Public Use
  Company Number: BR-JNJFOC-20140309764

PATIENT
  Age: 60 Year
  Sex: Female
  Weight: 74 kg

DRUGS (6)
  1. SIMPONI [Suspect]
     Indication: RHEUMATOID ARTHRITIS
     Route: 058
     Dates: start: 20131125
  2. TECNOMET [Concomitant]
     Indication: RHEUMATOID ARTHRITIS
     Route: 065
     Dates: start: 201309
  3. FOLIC ACID [Concomitant]
     Indication: FOLATE DEFICIENCY
     Route: 065
     Dates: start: 201309
  4. NORFLOXACIN [Concomitant]
     Indication: URINARY TRACT INFECTION
     Route: 065
     Dates: start: 20140308
  5. PRELONE [Concomitant]
     Route: 065
     Dates: start: 201312, end: 201312
  6. SPIRONOLACTONE [Concomitant]
     Indication: DIURETIC THERAPY
     Route: 065

REACTIONS (8)
  - Pneumonia [Recovered/Resolved]
  - Herpes virus infection [Recovered/Resolved]
  - Urinary tract infection [Not Recovered/Not Resolved]
  - Fatigue [Unknown]
  - Lung disorder [Not Recovered/Not Resolved]
  - Ear infection [Recovered/Resolved]
  - Malaise [Unknown]
  - Back pain [Unknown]
